FAERS Safety Report 8986613 (Version 4)
Quarter: 2013Q1

REPORT INFORMATION
  Report Type: Spontaneous
  Country: US (occurrence: US)
  Receive Date: 20121227
  Receipt Date: 20130206
  Transmission Date: 20140127
  Serious: Yes (Other)
  Sender: FDA-Public Use
  Company Number: US-009507513-1212USA010103

PATIENT
  Age: 56 None
  Sex: Female

DRUGS (4)
  1. PEG-INTRON [Suspect]
     Indication: HEPATITIS C
     Dosage: REDIPEN
     Dates: start: 20121205, end: 201212
  2. RIBAVIRIN [Suspect]
     Indication: HEPATITIS C
     Dosage: 2 A DAY
     Dates: start: 20121205, end: 201212
  3. RIBAVIRIN [Suspect]
     Dosage: 1 A DAY
     Dates: start: 201212
  4. VICTRELIS [Suspect]
     Indication: HEPATITIS C
     Dosage: UNK
     Route: 048
     Dates: start: 20130102

REACTIONS (39)
  - Blood glucose decreased [Unknown]
  - Head injury [Unknown]
  - Concussion [Unknown]
  - Visual impairment [Unknown]
  - Fall [Unknown]
  - Head injury [Unknown]
  - Balance disorder [Unknown]
  - Pain [Unknown]
  - Anaemia [Unknown]
  - Injection site erythema [Unknown]
  - Localised oedema [Unknown]
  - Anger [Unknown]
  - Injection site pain [Unknown]
  - Pain in extremity [Unknown]
  - Tremor [Unknown]
  - Appetite disorder [Unknown]
  - Insomnia [Unknown]
  - Injection site swelling [Unknown]
  - Neck pain [Unknown]
  - Pain [Unknown]
  - Gait disturbance [Unknown]
  - Hypoglycaemia [Unknown]
  - Skin disorder [Unknown]
  - Pain [Unknown]
  - Musculoskeletal disorder [Unknown]
  - Fall [Unknown]
  - White blood cell count decreased [Unknown]
  - Myalgia [Unknown]
  - Pyrexia [Unknown]
  - Headache [Unknown]
  - Rash macular [Unknown]
  - Headache [Unknown]
  - Disturbance in attention [Unknown]
  - Injection site reaction [Unknown]
  - Dizziness [Unknown]
  - Irritability [Unknown]
  - Memory impairment [Unknown]
  - Injection site reaction [Unknown]
  - Pain [Unknown]
